FAERS Safety Report 10007850 (Version 3)
Quarter: 2015Q3

REPORT INFORMATION
  Report Type: Spontaneous
  Country: US (occurrence: US)
  Receive Date: 20140313
  Receipt Date: 20150814
  Transmission Date: 20151125
  Serious: No
  Sender: FDA-Public Use
  Company Number: US-GILEAD-2013-0070040

PATIENT
  Age: 82 Year
  Sex: Female
  Weight: 54.88 kg

DRUGS (9)
  1. RECLAST [Concomitant]
     Active Substance: ZOLEDRONIC ACID
  2. DIGOXIN. [Concomitant]
     Active Substance: DIGOXIN
  3. SIMVASTATIN. [Concomitant]
     Active Substance: SIMVASTATIN
  4. KLOR-CON [Concomitant]
     Active Substance: POTASSIUM CHLORIDE
  5. LETAIRIS [Suspect]
     Active Substance: AMBRISENTAN
     Indication: SYSTEMIC SCLEROSIS
     Dosage: 5 MG, QD
     Route: 048
     Dates: start: 20121226, end: 201302
  6. OMEPRAZOLE. [Concomitant]
     Active Substance: OMEPRAZOLE
  7. ADCIRCA [Suspect]
     Active Substance: TADALAFIL
     Dosage: 20 MG, UNK
  8. METOPROLOL [Concomitant]
     Active Substance: METOPROLOL
  9. FUROSEMIDE. [Concomitant]
     Active Substance: FUROSEMIDE

REACTIONS (1)
  - Malaise [Unknown]
